FAERS Safety Report 21789357 (Version 1)
Quarter: 2022Q4

REPORT INFORMATION
  Report Type: Spontaneous
  Country: ES (occurrence: ES)
  Receive Date: 20221228
  Receipt Date: 20221228
  Transmission Date: 20230113
  Serious: Yes (Other)
  Sender: FDA-Public Use
  Company Number: None

PATIENT
  Age: 76 Year
  Sex: Male

DRUGS (1)
  1. KYMRIAH [Suspect]
     Active Substance: TISAGENLECLEUCEL
     Indication: Diffuse large B-cell lymphoma stage IV
     Dosage: UNK, ONCE/SINGLE, (1,2 X 10E6 - 6,0 X 10E8 CELULAS DISPERSION PARA PERFUSION 1-3 BOLSAS DE PERFUSION
     Route: 042
     Dates: start: 20220502, end: 20220502

REACTIONS (2)
  - Urticaria [Recovered/Resolved]
  - Cytokine release syndrome [Recovered/Resolved]

NARRATIVE: CASE EVENT DATE: 20220503
